FAERS Safety Report 8918534 (Version 1)
Quarter: 2012Q4

REPORT INFORMATION
  Report Type: 
  Country: US (occurrence: US)
  Receive Date: 20121120
  Receipt Date: 20121120
  Transmission Date: 20130627
  Serious: No
  Sender: FDA-Public Use
  Company Number: US-ASTRAZENECA-2012SE18832

PATIENT
  Sex: Female

DRUGS (4)
  1. NEXIUM [Suspect]
     Indication: PAIN
     Route: 050
  2. NEXIUM [Suspect]
     Indication: NAUSEA
     Route: 050
  3. NEXIUM [Suspect]
     Indication: ULCER
     Route: 050
  4. PREDNISONE [Concomitant]

REACTIONS (2)
  - Dysphagia [Unknown]
  - Off label use [Unknown]
